FAERS Safety Report 6869552-6 (Version None)
Quarter: 2010Q3

REPORT INFORMATION
  Report Type: 
  Country: None (occurrence: None)
  Receive Date: 20100722
  Receipt Date: 20080813
  Transmission Date: 20110219
  Serious: No
  Sender: FDA-Public Use
  Company Number: US-PFIZER INC-2008066934

PATIENT
  Sex: Male

DRUGS (3)
  1. CHANTIX [Suspect]
     Dates: start: 20080801
  2. MORPHINE [Concomitant]
     Indication: PAIN
  3. PERCOCET [Concomitant]
     Indication: PAIN

REACTIONS (2)
  - ABDOMINAL DISCOMFORT [None]
  - ANALGESIC THERAPY [None]
